FAERS Safety Report 7225386-4 (Version None)
Quarter: 2011Q1

REPORT INFORMATION
  Report Type: 
  Country: None (occurrence: None)
  Receive Date: 20110113
  Receipt Date: 20110104
  Transmission Date: 20110831
  Serious: Yes (Hospitalization)
  Sender: FDA-Public Use
  Company Number: FR-ASTRAZENECA-2011SE01176

PATIENT
  Sex: Female

DRUGS (6)
  1. ROCEPHIN [Concomitant]
     Indication: PYELONEPHRITIS
     Dates: start: 20101209
  2. NEXIUM [Suspect]
     Route: 048
     Dates: start: 20101206
  3. TRIMEPRAZINE TARTRATE [Suspect]
     Route: 048
  4. CIPROFLOXACIN HYDROCHLORIDE [Concomitant]
     Indication: KLEBSIELLA INFECTION
     Dates: start: 20101204, end: 20101208
  5. TERALITHE [Suspect]
     Route: 048
  6. RIVOTRIL [Suspect]
     Route: 048

REACTIONS (3)
  - CYTOLYTIC HEPATITIS [None]
  - CHOLESTASIS [None]
  - DRUG LEVEL BELOW THERAPEUTIC [None]
